FAERS Safety Report 11615962 (Version 1)
Quarter: 2015Q4

REPORT INFORMATION
  Report Type: Spontaneous
  Country: US (occurrence: None)
  Receive Date: 20151008
  Receipt Date: 20151008
  Transmission Date: 20160304
  Serious: No
  Sender: FDA-Public Use
  Company Number: None

PATIENT
  Age: 58 Year
  Sex: Female
  Weight: 150.6 kg

DRUGS (10)
  1. HYCHO DIZE BLOOD PRESSURE [Concomitant]
  2. WELLBUTRIN [Concomitant]
     Active Substance: BUPROPION HYDROCHLORIDE
  3. PRILOSEC [Concomitant]
     Active Substance: OMEPRAZOLE MAGNESIUM
  4. VITAMIN E [Concomitant]
     Active Substance: .ALPHA.-TOCOPHEROL
  5. PANENTEA [Concomitant]
  6. RANITIDINE [Concomitant]
     Active Substance: RANITIDINE\RANITIDINE HYDROCHLORIDE
  7. XELJANZ [Suspect]
     Active Substance: TOFACITINIB CITRATE
     Indication: ARTHRITIS
     Dosage: I PILL TWICE DAILY
     Route: 048
     Dates: start: 20150701
  8. ZYPREXA [Suspect]
     Active Substance: OLANZAPINE
  9. LOZEPAM [Concomitant]
  10. DELBRAX [Concomitant]

REACTIONS (3)
  - Cough [None]
  - Fatigue [None]
  - Hyperhidrosis [None]

NARRATIVE: CASE EVENT DATE: 20150901
